FAERS Safety Report 18769814 (Version 1)
Quarter: 2021Q1

REPORT INFORMATION
  Report Type: Report from Study
  Country: US (occurrence: US)
  Receive Date: 20210121
  Receipt Date: 20210121
  Transmission Date: 20210419
  Serious: Yes (Other)
  Sender: FDA-Public Use
  Company Number: US-JNJFOC-20210126001

PATIENT
  Age: 60 Year
  Sex: Female

DRUGS (2)
  1. SPRAVATO [Suspect]
     Active Substance: ESKETAMINE
     Dosage: 84 MG, 16 DOSES TOTAL
     Dates: start: 20200730, end: 20210113
  2. SPRAVATO [Suspect]
     Active Substance: ESKETAMINE
     Indication: DEPRESSION
     Dosage: 56 MG, 1 DOSE TOTAL
     Dates: start: 20200730, end: 20200730

REACTIONS (3)
  - Sedation [Recovered/Resolved]
  - Nocturia [Not Recovered/Not Resolved]
  - Dissociation [Recovered/Resolved]
